FAERS Safety Report 19595111 (Version 4)
Quarter: 2024Q3

REPORT INFORMATION
  Report Type: Report from Study
  Country: US (occurrence: US)
  Receive Date: 20210723
  Receipt Date: 20240729
  Transmission Date: 20241016
  Serious: Yes (Hospitalization)
  Sender: ACADIA PHARMACEUTICALS
  Company Number: US-ACADIA PHARMACEUTICALS INC.-ACA-2021-PIM-002615

PATIENT
  Sex: Male

DRUGS (16)
  1. NUPLAZID [Suspect]
     Active Substance: PIMAVANSERIN TARTRATE
     Indication: Parkinson^s disease
     Dosage: 34 MILLIGRAM, QD
     Route: 048
     Dates: start: 202104
  2. NUPLAZID [Suspect]
     Active Substance: PIMAVANSERIN TARTRATE
     Dosage: 34 MILLIGRAM, QD
     Route: 048
     Dates: start: 202304
  3. RASAGILINE [Concomitant]
     Active Substance: RASAGILINE\RASAGILINE MESYLATE
  4. TAMSULOSIN [Concomitant]
     Active Substance: TAMSULOSIN
  5. MIRALAX [Concomitant]
     Active Substance: POLYETHYLENE GLYCOL 3350
  6. VITAMIN E [Concomitant]
     Active Substance: .ALPHA.-TOCOPHEROL
  7. ENZYME CO [Concomitant]
  8. FISH OIL [Concomitant]
     Active Substance: FISH OIL
  9. GABAPENTIN [Concomitant]
     Active Substance: GABAPENTIN
  10. MELOXICAM [Concomitant]
     Active Substance: MELOXICAM
  11. NEUPRO [Concomitant]
     Active Substance: ROTIGOTINE
  12. CARBIDOPA [Concomitant]
     Active Substance: CARBIDOPA
  13. MELATONIN [Concomitant]
     Active Substance: MELATONIN
  14. VITAMINS NOS [Concomitant]
     Active Substance: VITAMINS
  15. LOSARTAN [Concomitant]
     Active Substance: LOSARTAN
  16. PROBIOTICS NOS [Concomitant]
     Active Substance: PROBIOTICS NOS

REACTIONS (1)
  - Knee operation [Unknown]
